FAERS Safety Report 9686045 (Version 2)
Quarter: 2013Q4

REPORT INFORMATION
  Report Type: Spontaneous
  Country: US (occurrence: US)
  Receive Date: 20131113
  Receipt Date: 20131113
  Transmission Date: 20140711
  Serious: No
  Sender: FDA-Public Use
  Company Number: US-ALLERGAN-1217715US

PATIENT
  Age: 76 Year
  Sex: Female

DRUGS (3)
  1. COMBIGAN[R] [Suspect]
     Indication: GLAUCOMA
     Dosage: 2 GTT, BID
     Route: 047
     Dates: start: 201211
  2. XALATAN                            /01297301/ [Concomitant]
     Indication: GLAUCOMA
     Dosage: 2 GTT, UNK
     Route: 047
  3. PILOCARPINE [Concomitant]
     Indication: GLAUCOMA
     Dosage: 2 GTT, QID
     Route: 047
     Dates: start: 201207

REACTIONS (2)
  - Skin hyperpigmentation [Not Recovered/Not Resolved]
  - Periorbital oedema [Not Recovered/Not Resolved]
